FAERS Safety Report 4699287-X (Version None)
Quarter: 2005Q2

REPORT INFORMATION
  Report Type: 
  Country: None (occurrence: None)
  Receive Date: 20050624
  Receipt Date: 20050615
  Transmission Date: 20051028
  Serious: Yes (Hospitalization)
  Sender: FDA-Public Use
  Company Number: US-GLAXOSMITHKLINE-A0562909A

PATIENT
  Age: 86 Year
  Sex: Female
  Weight: 57.7 kg

DRUGS (1)
  1. LAMOTRIGINE [Suspect]
     Indication: PSYCHOTIC DISORDER
     Route: 048
     Dates: end: 20050614

REACTIONS (1)
  - FALL [None]
